FAERS Safety Report 8614973-4 (Version None)
Quarter: 2012Q3

REPORT INFORMATION
  Report Type: 
  Country: None (occurrence: None)
  Receive Date: 20120809
  Receipt Date: 20120730
  Transmission Date: 20120928
  Serious: Yes (Other)
  Sender: FDA-Public Use
  Company Number: AUR-APL-2012-03052

PATIENT
  Age: 94 Year
  Sex: Female
  Weight: 48.9885 kg

DRUGS (3)
  1. SPIRIVA [Concomitant]
  2. ZOLPIDEM [Suspect]
     Indication: INSOMNIA
     Dosage: ONCE A DAY AT BEDTIME (5 MG, 1 IN 1 D)
     Dates: start: 20120627
  3. AMLODIPINE [Concomitant]

REACTIONS (5)
  - FALL [None]
  - PAIN [None]
  - CONTUSION [None]
  - HEAD INJURY [None]
  - MEMORY IMPAIRMENT [None]
